FAERS Safety Report 18281607 (Version 1)
Quarter: 2020Q3

REPORT INFORMATION
  Report Type: Spontaneous
  Country: FR (occurrence: FR)
  Receive Date: 20200918
  Receipt Date: 20200918
  Transmission Date: 20201103
  Serious: Yes (Hospitalization, Other)
  Sender: FDA-Public Use
  Company Number: FR-TEVA-2020-FR-1829534

PATIENT
  Age: 43 Year
  Sex: Female

DRUGS (2)
  1. ALPRAZOLAM. [Suspect]
     Active Substance: ALPRAZOLAM
     Indication: PRODUCT USED FOR UNKNOWN INDICATION
     Route: 065
  2. TRAMADOL. [Suspect]
     Active Substance: TRAMADOL
     Indication: PRODUCT USED FOR UNKNOWN INDICATION
     Route: 065

REACTIONS (8)
  - Respiratory failure [Not Recovered/Not Resolved]
  - Quadriplegia [Not Recovered/Not Resolved]
  - Toxicity to various agents [Recovering/Resolving]
  - Myelitis [Not Recovered/Not Resolved]
  - Stress cardiomyopathy [Recovered/Resolved]
  - Hypotension [Recovered/Resolved]
  - Cardiogenic shock [Recovered/Resolved]
  - Loss of consciousness [Recovered/Resolved]
